FAERS Safety Report 6770853-0 (Version None)
Quarter: 2010Q2

REPORT INFORMATION
  Report Type: 
  Country: None (occurrence: None)
  Receive Date: 20100614
  Receipt Date: 20100614
  Transmission Date: 20101027
  Serious: Yes (Hospitalization)
  Sender: FDA-Public Use
  Company Number: None

PATIENT
  Sex: Male
  Weight: 104 kg

DRUGS (2)
  1. CISPLATIN [Suspect]
     Dosage: 180 MG
     Dates: end: 20100511
  2. TAXOL [Suspect]
     Dosage: 360 MG
     Dates: end: 20100511

REACTIONS (5)
  - APHASIA [None]
  - ASTHENIA [None]
  - DEHYDRATION [None]
  - DIARRHOEA [None]
  - WEIGHT DECREASED [None]
